FAERS Safety Report 17317180 (Version 1)
Quarter: 2020Q1

REPORT INFORMATION
  Report Type: Report from Study
  Country: None (occurrence: GB)
  Receive Date: 20200124
  Receipt Date: 20200124
  Transmission Date: 20200409
  Serious: Yes (Death, Other)
  Sender: FDA-Public Use
  Company Number: GB-ABBVIE-19P-167-2952528-00

PATIENT
  Age: 12 Year
  Sex: Female
  Weight: 30 kg

DRUGS (5)
  1. VENETOCLAX. [Suspect]
     Active Substance: VENETOCLAX
     Indication: ACUTE MYELOID LEUKAEMIA
     Dosage: 1 CYCLE
     Route: 048
     Dates: start: 20190904, end: 20190912
  2. POSACONAZOLE [Concomitant]
     Active Substance: POSACONAZOLE
     Indication: LOWER RESPIRATORY TRACT INFECTION FUNGAL
     Route: 048
     Dates: start: 20190913
  3. VENETOCLAX. [Suspect]
     Active Substance: VENETOCLAX
     Route: 048
     Dates: start: 20190913, end: 20191020
  4. CYTARABINE. [Concomitant]
     Active Substance: CYTARABINE
     Indication: CHEMOTHERAPY
     Route: 042
     Dates: start: 20190908, end: 20190911
  5. CYTARABINE. [Concomitant]
     Active Substance: CYTARABINE
     Indication: PRODUCT USED FOR UNKNOWN INDICATION
     Dosage: HIGH DOSE

REACTIONS (10)
  - Febrile neutropenia [Recovered/Resolved]
  - Fluid retention [Recovered/Resolved]
  - Therapeutic product effect incomplete [Unknown]
  - Acute myeloid leukaemia [Not Recovered/Not Resolved]
  - Nausea [Recovered/Resolved]
  - Acute myeloid leukaemia [Fatal]
  - Biopsy bone marrow abnormal [Not Recovered/Not Resolved]
  - Acute myeloid leukaemia [Unknown]
  - Drug intolerance [Recovered/Resolved]
  - Tumour lysis syndrome [Recovered/Resolved]

NARRATIVE: CASE EVENT DATE: 2019
